FAERS Safety Report 19118437 (Version 1)
Quarter: 2021Q2

REPORT INFORMATION
  Report Type: Spontaneous
  Country: AT (occurrence: AT)
  Receive Date: 20210409
  Receipt Date: 20210409
  Transmission Date: 20210717
  Serious: Yes (Other)
  Sender: FDA-Public Use
  Company Number: AT-ASTRAZENECA-2021A247336

PATIENT
  Age: 69 Year
  Sex: Female

DRUGS (15)
  1. TRITACE [Concomitant]
     Active Substance: RAMIPRIL
     Dosage: 5.0MG UNKNOWN
     Route: 065
     Dates: start: 20201221, end: 20210121
  2. EUTHYROX [Concomitant]
     Active Substance: LEVOTHYROXINE SODIUM
     Dosage: 75.0UG/INHAL UNKNOWN
     Route: 065
     Dates: start: 20201221, end: 20210121
  3. CONCOR [Concomitant]
     Active Substance: BISOPROLOL FUMARATE
     Dosage: 10.0MG UNKNOWN
     Route: 065
     Dates: start: 20201221, end: 20210121
  4. PANTOLOC [Concomitant]
     Active Substance: PANTOPRAZOLE SODIUM
     Dosage: 40.0MG UNKNOWN
     Route: 065
     Dates: start: 20201221, end: 20210121
  5. PROCORALAN [Concomitant]
     Active Substance: IVABRADINE
     Dosage: 10.0MG UNKNOWN
     Route: 065
     Dates: start: 20201221, end: 20210121
  6. TRAJENTA [Concomitant]
     Active Substance: LINAGLIPTIN
     Dosage: 5.0MG UNKNOWN
     Route: 065
     Dates: start: 20201221, end: 20210121
  7. HALCION [Concomitant]
     Active Substance: TRIAZOLAM
     Dosage: 0.25MG UNKNOWN
     Route: 065
     Dates: start: 20201221, end: 20210121
  8. SPIRONO [Concomitant]
     Dosage: 50.0MG UNKNOWN
     Route: 065
     Dates: start: 20210106, end: 20210121
  9. HYDAL [Concomitant]
     Active Substance: HYDROMORPHONE HYDROCHLORIDE
     Dosage: 4.0MG UNKNOWN
     Route: 065
     Dates: start: 20201231, end: 20210121
  10. SAROTEN [Suspect]
     Active Substance: AMITRIPTYLINE
     Dosage: 50.0MG UNKNOWN
     Route: 065
     Dates: start: 20201221, end: 20201223
  11. TEMESTA [LORAZEPAM] [Concomitant]
     Active Substance: LORAZEPAM
     Dosage: 4.0MG UNKNOWN
     Route: 065
     Dates: start: 20201224, end: 20210121
  12. CIPRALEX [Suspect]
     Active Substance: ESCITALOPRAM OXALATE
     Dosage: 10.0MG UNKNOWN
     Route: 065
     Dates: start: 20201221, end: 20201223
  13. LASIX [Concomitant]
     Active Substance: FUROSEMIDE
     Dosage: 80.0MG UNKNOWN
     Route: 065
     Dates: start: 20201221, end: 20210121
  14. SORTIS [Concomitant]
     Active Substance: ATORVASTATIN
     Dosage: 40.0MG UNKNOWN
     Route: 065
     Dates: start: 20201223, end: 20210121
  15. SEROQUEL [Suspect]
     Active Substance: QUETIAPINE FUMARATE
     Dosage: 50.0MG UNKNOWN
     Route: 048
     Dates: start: 20201221, end: 20201223

REACTIONS (1)
  - Electrocardiogram QT prolonged [Not Recovered/Not Resolved]
